FAERS Safety Report 10257184 (Version 1)
Quarter: 2014Q2

REPORT INFORMATION
  Report Type: Spontaneous
  Country: US (occurrence: None)
  Receive Date: 20140623
  Receipt Date: 20140623
  Transmission Date: 20141212
  Serious: No
  Sender: FDA-Public Use
  Company Number: None

PATIENT
  Age: 47 Year
  Sex: Male
  Weight: 83.92 kg

DRUGS (1)
  1. XELODA [Suspect]
     Indication: RECTAL CANCER
     Dosage: 500 MG, 4 TAB BID X 14 D
     Route: 048
     Dates: start: 20140315, end: 20140501

REACTIONS (2)
  - Burning sensation [None]
  - Diarrhoea [None]
